FAERS Safety Report 4754352-3 (Version None)
Quarter: 2005Q3

REPORT INFORMATION
  Report Type: 
  Country: None (occurrence: None)
  Receive Date: 20050825
  Receipt Date: 20050810
  Transmission Date: 20060218
  Serious: Yes (Other)
  Sender: FDA-Public Use
  Company Number: PHBS2005US11683

PATIENT
  Age: 82 Year
  Sex: Female

DRUGS (1)
  1. VISUDYNE [Suspect]
     Indication: CHOROIDAL NEOVASCULARISATION
     Dosage: 6 MG/M^2 ONCE IV
     Route: 042

REACTIONS (3)
  - CHOROIDAL INFARCTION [None]
  - RETINAL INFARCTION [None]
  - VISUAL ACUITY REDUCED [None]
